FAERS Safety Report 7276780-7 (Version None)
Quarter: 2011Q1

REPORT INFORMATION
  Report Type: 
  Country: None (occurrence: None)
  Receive Date: 20110207
  Receipt Date: 20110124
  Transmission Date: 20110831
  Serious: Yes (Hospitalization)
  Sender: FDA-Public Use
  Company Number: JP-AMGEN-US445376

PATIENT
  Age: 72 Year
  Sex: Female
  Weight: 41 kg

DRUGS (13)
  1. JUVELA [Concomitant]
     Dosage: 200 MG, 3X/DAY
     Route: 048
     Dates: start: 19890901
  2. BONALON                            /01220302/ [Concomitant]
     Indication: PROPHYLAXIS
     Dosage: 35 MG, QWK
     Route: 048
  3. ALLORINE [Concomitant]
  4. PANALDINE [Concomitant]
     Dosage: 100 MG, 2X/DAY
     Route: 048
     Dates: start: 19890707
  5. NORVASC [Concomitant]
     Dosage: 5 MG, 1X/DAY
     Route: 048
     Dates: start: 20090108
  6. PREDNISOLONE [Suspect]
     Indication: RHEUMATOID ARTHRITIS
     Dosage: 7 MG, 1X/DAY
     Route: 048
  7. PREDNISOLONE [Suspect]
     Dosage: 3 MG, 1X/DAY
     Route: 048
  8. FAMOTIDINE [Concomitant]
     Indication: PROPHYLAXIS
     Dosage: 20 MG, 2X/DAY
     Route: 048
  9. FLUCAM [Concomitant]
     Dosage: 55 MG, QD
     Route: 048
  10. HYDANTOL F [Concomitant]
     Dosage: 1 DF, 2X/DAY
     Route: 048
     Dates: start: 19890707
  11. METHOTREXATE [Concomitant]
     Dosage: 4 MG, QWK
  12. ENBREL [Suspect]
     Indication: RHEUMATOID ARTHRITIS
     Dosage: 50 MG, QWK
     Route: 058
  13. ENBREL [Suspect]
     Dosage: 25 MG, 2X/WEEK
     Dates: end: 20100916

REACTIONS (1)
  - ENCEPHALITIS POST MEASLES [None]
